FAERS Safety Report 19640711 (Version 6)
Quarter: 2022Q1

REPORT INFORMATION
  Report Type: Spontaneous
  Country: JP (occurrence: JP)
  Receive Date: 20210729
  Receipt Date: 20220310
  Transmission Date: 20220424
  Serious: Yes (Hospitalization, Other)
  Sender: FDA-Public Use
  Company Number: NVSC2021JP170098

PATIENT
  Age: 40 Year
  Sex: Female

DRUGS (6)
  1. DICLOFENAC SODIUM [Suspect]
     Active Substance: DICLOFENAC SODIUM
     Indication: Tumour pain
     Dosage: 37.5 MG
     Route: 048
     Dates: start: 20210624, end: 20210628
  2. CARBOPLATIN [Suspect]
     Active Substance: CARBOPLATIN
     Indication: Cervix carcinoma stage 0
     Dosage: 645 MG
     Route: 042
     Dates: start: 20210415, end: 20210528
  3. PACLITAXEL [Suspect]
     Active Substance: PACLITAXEL
     Indication: Cervix carcinoma stage 0
     Dosage: 264 MG
     Route: 042
     Dates: start: 20210415, end: 20210528
  4. LOXOPROFEN SODIUM DIHYDRATE [Suspect]
     Active Substance: LOXOPROFEN SODIUM DIHYDRATE
     Indication: Tumour pain
     Dosage: 60 MG, TID
     Route: 048
     Dates: start: 20210322, end: 20210628
  5. EDOXABAN TOSYLATE [Suspect]
     Active Substance: EDOXABAN TOSYLATE
     Indication: Venous thrombosis
     Dosage: 30 MG, QD
     Route: 048
     Dates: start: 20210415, end: 20210628
  6. LANSOPRAZOLE [Concomitant]
     Active Substance: LANSOPRAZOLE
     Indication: Gastritis prophylaxis
     Dosage: 30 MG, QD
     Route: 048
     Dates: start: 20210624

REACTIONS (1)
  - Gastric haemorrhage [Recovered/Resolved]

NARRATIVE: CASE EVENT DATE: 20210628
